FAERS Safety Report 8351533 (Version 6)
Quarter: 2012Q4

REPORT INFORMATION
  Report Type: 
  Country: PR (occurrence: PR)
  Receive Date: 20120124
  Receipt Date: 20121106
  Transmission Date: 20130627
  Serious: Yes (Hospitalization, Disabling, Other)
  Sender: FDA-Public Use
  Company Number: PR-MERCK-1112USA02420

PATIENT

DRUGS (4)
  1. FOSAMAX [Suspect]
     Indication: OSTEOPOROSIS
     Dosage: 70 mg, qd
     Route: 048
     Dates: start: 2000, end: 201105
  2. FOSAMAX [Suspect]
     Indication: OSTEOPENIA
  3. FOSAMAX PLUS D [Suspect]
     Indication: OSTEOPOROSIS
     Dosage: 70 mg, QW
     Route: 048
     Dates: start: 2009
  4. FOSAMAX PLUS D [Suspect]
     Indication: OSTEOPENIA

REACTIONS (62)
  - Femur fracture [Not Recovered/Not Resolved]
  - Pelvic fracture [Unknown]
  - Adverse event [Not Recovered/Not Resolved]
  - Lumbar vertebral fracture [Not Recovered/Not Resolved]
  - Post procedural haemorrhage [Unknown]
  - Appendix disorder [Unknown]
  - Hip fracture [Unknown]
  - Uterine disorder [Unknown]
  - Dental caries [Unknown]
  - Hypertension [Unknown]
  - Rheumatoid arthritis [Unknown]
  - Spondylolisthesis [Not Recovered/Not Resolved]
  - Spinal osteoarthritis [Unknown]
  - Spinal osteoarthritis [Not Recovered/Not Resolved]
  - Exostosis [Unknown]
  - Muscular weakness [Unknown]
  - Foot fracture [Unknown]
  - Foot fracture [Unknown]
  - Anxiety [Unknown]
  - Musculoskeletal disorder [Unknown]
  - Injury [Unknown]
  - Balance disorder [Unknown]
  - Demyelinating polyneuropathy [Unknown]
  - Bone disorder [Unknown]
  - Facet joint syndrome [Not Recovered/Not Resolved]
  - Patellofemoral pain syndrome [Unknown]
  - Joint effusion [Unknown]
  - Synovial cyst [Unknown]
  - Haemorrhoidal haemorrhage [Unknown]
  - Psoriatic arthropathy [Not Recovered/Not Resolved]
  - Cardiac valve disease [Unknown]
  - Neuropathy peripheral [Not Recovered/Not Resolved]
  - Spondylolysis [Unknown]
  - Intervertebral disc protrusion [Unknown]
  - Adverse drug reaction [Unknown]
  - Lacunar infarction [Unknown]
  - Inappropriate schedule of drug administration [Unknown]
  - Tremor [Unknown]
  - Osteoarthritis [Unknown]
  - Cough [Unknown]
  - Dyspnoea [Unknown]
  - Gait disturbance [Unknown]
  - Skin disorder [Unknown]
  - Synovial cyst [Unknown]
  - Poor quality sleep [Unknown]
  - Osteoarthritis [Unknown]
  - Cerebral ischaemia [Unknown]
  - Fall [Unknown]
  - Diverticulum [Unknown]
  - Hepatic enzyme increased [Unknown]
  - Alopecia [Unknown]
  - Arthralgia [Unknown]
  - Muscle spasms [Unknown]
  - Dizziness [Unknown]
  - Drug hypersensitivity [Unknown]
  - Constipation [Unknown]
  - Nausea [Unknown]
  - Arthralgia [Unknown]
  - Pain in extremity [Unknown]
  - Back pain [Unknown]
  - Oedema peripheral [Unknown]
  - Wrist fracture [Unknown]
